FAERS Safety Report 15386871 (Version 1)
Quarter: 2018Q3

REPORT INFORMATION
  Report Type: Spontaneous
  Country: FR (occurrence: FR)
  Receive Date: 20180914
  Receipt Date: 20180914
  Transmission Date: 20181010
  Serious: Yes (Hospitalization)
  Sender: FDA-Public Use
  Company Number: FR-PFIZER INC-2018368052

PATIENT
  Age: 68 Year
  Sex: Female
  Weight: 78 kg

DRUGS (5)
  1. THERALENE [Concomitant]
     Active Substance: TRIMEPRAZINE
     Indication: BIPOLAR DISORDER
     Dosage: 15 MG, DAILY
     Route: 048
  2. IBRANCE [Suspect]
     Active Substance: PALBOCICLIB
     Indication: BREAST CANCER METASTATIC
     Dosage: 100 MG, 1X/DAY // 21 DAYS/28
     Route: 048
     Dates: start: 201711, end: 20180802
  3. FASLODEX [Concomitant]
     Active Substance: FULVESTRANT
     Indication: BREAST CANCER METASTATIC
     Dosage: 500 MG, MONTHLY
     Route: 030
     Dates: start: 201711
  4. TERALITHE [Concomitant]
     Active Substance: LITHIUM CARBONATE
     Indication: BIPOLAR DISORDER
     Dosage: 600 MG, DAILY
     Route: 048
  5. XEROQUEL [Concomitant]
     Active Substance: QUETIAPINE FUMARATE
     Indication: BIPOLAR DISORDER
     Dosage: 900 MG, 1X/DAY
     Route: 048

REACTIONS (1)
  - Depressed mood [Recovering/Resolving]

NARRATIVE: CASE EVENT DATE: 20180510
